FAERS Safety Report 8433594 (Version 3)
Quarter: 2012Q4

REPORT INFORMATION
  Report Type: 
  Country: US (occurrence: US)
  Receive Date: 20120229
  Receipt Date: 20121114
  Transmission Date: 20130627
  Serious: Yes (Other)
  Sender: FDA-Public Use
  Company Number: PHEH2012US003253

PATIENT
  Sex: Female
  Weight: 65.6 kg

DRUGS (14)
  1. GLEEVEC [Suspect]
     Indication: CHRONIC MYELOID LEUKAEMIA
     Dosage: 300 mg, daily
     Route: 048
     Dates: start: 20070827
  2. GLEEVEC [Suspect]
     Dosage: 300 mg, daily
     Route: 048
     Dates: start: 20071226
  3. GLEEVEC [Suspect]
     Dosage: 200 mg, daily
     Route: 048
     Dates: start: 200803
  4. GLEEVEC [Suspect]
     Dosage: 100 mg, daily
     Route: 048
  5. GLEEVEC [Suspect]
     Dosage: 200 mg, daily
     Route: 048
     Dates: end: 201006
  6. GLEEVEC [Suspect]
     Dosage: 300 mg, Daily
     Dates: start: 201009
  7. GLEEVEC [Suspect]
     Dosage: 200 mg, daily
     Route: 048
     Dates: start: 201110
  8. GLEEVEC [Suspect]
     Dosage: 200 mg
  9. GLEEVEC [Suspect]
     Dosage: 200 mg, two days in a row
     Dates: start: 201205
  10. GLEEVEC [Suspect]
     Dosage: 300 mg, every third day
     Dates: start: 201205
  11. GLEEVEC [Suspect]
     Dosage: 200 mg, daily
     Dates: start: 201209
  12. TASIGNA [Suspect]
     Dosage: 200 mg, BID
  13. HYDREA [Concomitant]
     Dosage: 500 mg,
  14. HYDREA [Concomitant]
     Dosage: 500 mg, every other day
     Dates: end: 201201

REACTIONS (29)
  - Skin toxicity [Unknown]
  - Gastrointestinal haemorrhage [Recovered/Resolved]
  - Gastritis [Recovered/Resolved]
  - Electrolyte imbalance [Recovered/Resolved]
  - Anaemia [Unknown]
  - Retching [Unknown]
  - Weight decreased [Unknown]
  - Fatigue [Unknown]
  - Tremor [Unknown]
  - Malaise [Unknown]
  - Nausea [Unknown]
  - Vomiting [Unknown]
  - Abdominal discomfort [Unknown]
  - Eye irritation [Unknown]
  - Hypophagia [Unknown]
  - Platelet count increased [Unknown]
  - Haemoglobin decreased [Recovering/Resolving]
  - Hyponatraemia [Unknown]
  - Glomerular filtration rate decreased [Unknown]
  - Red blood cell count decreased [Unknown]
  - Neutrophil count increased [Unknown]
  - Toxicity to various agents [Unknown]
  - Blood chloride decreased [Unknown]
  - Blood urea increased [Unknown]
  - Blood creatinine increased [Unknown]
  - Blood glucose increased [Unknown]
  - Drug intolerance [Unknown]
  - Cataract [Unknown]
  - Blood lactate dehydrogenase increased [Unknown]
